FAERS Safety Report 19164014 (Version 1)
Quarter: 2021Q2

REPORT INFORMATION
  Report Type: Spontaneous
  Country: AT (occurrence: AT)
  Receive Date: 20210421
  Receipt Date: 20210421
  Transmission Date: 20210717
  Serious: Yes (Other)
  Sender: FDA-Public Use
  Company Number: AT-PFIZER INC-2021397333

PATIENT
  Age: 46 Year
  Sex: Female

DRUGS (21)
  1. SPRAVATO [Suspect]
     Active Substance: ESKETAMINE
     Dosage: 56 MG
     Dates: start: 20210211, end: 20210211
  2. SPRAVATO [Suspect]
     Active Substance: ESKETAMINE
     Dosage: 56 MG
     Dates: start: 20210223, end: 20210223
  3. MIRTAZAPIN [Suspect]
     Active Substance: MIRTAZAPINE
     Dosage: 45 MG
     Dates: start: 202102
  4. VENLAFAXINE [Concomitant]
     Active Substance: VENLAFAXINE HYDROCHLORIDE
     Dosage: 225 MG
     Dates: start: 20210115
  5. LYRICA [Suspect]
     Active Substance: PREGABALIN
     Dosage: 125 MG
     Dates: start: 20210128, end: 20210130
  6. LYRICA [Suspect]
     Active Substance: PREGABALIN
     Dosage: 300 MG
     Dates: start: 20210205, end: 20210208
  7. SPRAVATO [Suspect]
     Active Substance: ESKETAMINE
     Dosage: 56 MG
     Dates: start: 20210203, end: 20210203
  8. VENLAFAXINE [Concomitant]
     Active Substance: VENLAFAXINE HYDROCHLORIDE
     Dosage: 150 MG
     Dates: start: 20210108, end: 20210114
  9. LYRICA [Suspect]
     Active Substance: PREGABALIN
     Dosage: 25 MG
     Dates: start: 20210119, end: 20210120
  10. LYRICA [Suspect]
     Active Substance: PREGABALIN
     Dosage: 200 MG
     Dates: start: 20210131, end: 20210204
  11. SPRAVATO [Suspect]
     Active Substance: ESKETAMINE
     Dosage: 56 MG
     Dates: start: 20210209, end: 20210209
  12. SPRAVATO [Suspect]
     Active Substance: ESKETAMINE
     Dosage: 56 MG
     Dates: start: 20210205, end: 20210205
  13. MIRTAZAPIN [Suspect]
     Active Substance: MIRTAZAPINE
     Dosage: 30 MG
     Dates: start: 20210201, end: 202102
  14. LYRICA [Suspect]
     Active Substance: PREGABALIN
     Dosage: 75 MG
     Dates: start: 20210121, end: 20210127
  15. LYRICA [Suspect]
     Active Substance: PREGABALIN
     Dosage: 400 MG
     Dates: start: 20210209, end: 20210218
  16. SPRAVATO [Suspect]
     Active Substance: ESKETAMINE
     Indication: DEPRESSION
     Dosage: 28 MG
     Dates: start: 20210121, end: 20210121
  17. SEROQUEL [Suspect]
     Active Substance: QUETIAPINE FUMARATE
     Route: 065
     Dates: start: 20210118, end: 202102
  18. VENLAFAXINE [Concomitant]
     Active Substance: VENLAFAXINE HYDROCHLORIDE
     Dosage: 75 MG
     Dates: start: 20210107, end: 20210107
  19. LYRICA [Suspect]
     Active Substance: PREGABALIN
     Dosage: 600 MG
     Dates: start: 20210219
  20. SPRAVATO [Suspect]
     Active Substance: ESKETAMINE
     Dosage: 28 MG
     Dates: start: 20210126, end: 20210126
  21. SPRAVATO [Suspect]
     Active Substance: ESKETAMINE
     Dosage: 56 MG
     Dates: start: 20210128, end: 20210128

REACTIONS (3)
  - Disease recurrence [Recovered/Resolved]
  - Panic attack [Recovered/Resolved]
  - Dissociation [Recovered/Resolved]

NARRATIVE: CASE EVENT DATE: 20210223
